FAERS Safety Report 10196705 (Version 1)
Quarter: 2014Q2

REPORT INFORMATION
  Report Type: Spontaneous
  Country: US (occurrence: US)
  Receive Date: 20140527
  Receipt Date: 20140527
  Transmission Date: 20141212
  Serious: Yes (Hospitalization)
  Sender: FDA-Public Use
  Company Number: US-DRREDDYS-USA/USA/14/0040638

PATIENT
  Age: 75 Year
  Sex: Male

DRUGS (9)
  1. OLANZAPINE FILM-COATED TABLET [Suspect]
     Indication: PRODUCT USED FOR UNKNOWN INDICATION
     Route: 065
  2. TOPIRAMATE [Suspect]
     Indication: PRODUCT USED FOR UNKNOWN INDICATION
     Route: 065
  3. TOPIRAMATE [Suspect]
     Dosage: 100 MG NIGHTLY AT BEDTIME
  4. AMITRIPTYLINE [Suspect]
     Indication: PRODUCT USED FOR UNKNOWN INDICATION
     Route: 065
  5. AMITRIPTYLINE [Suspect]
     Route: 065
  6. CHLORDIAZEPOXIDE [Suspect]
     Indication: PRODUCT USED FOR UNKNOWN INDICATION
     Dosage: 50 MG ONCE IN THE MORNING, 75 MG NIGHTLYAT BED TIMW
     Route: 065
  7. CHLORDIAZEPOXIDE [Suspect]
     Dosage: 25 MG EVERY 6 HOURS AS NEEDED
     Route: 065
  8. SERTRALINE HYDROCHLORIDE [Concomitant]
     Indication: PRODUCT USED FOR UNKNOWN INDICATION
     Route: 065
  9. TRAZODONE [Concomitant]
     Indication: PRODUCT USED FOR UNKNOWN INDICATION
     Dosage: NIGHTLY AT BEDTIME
     Route: 065

REACTIONS (3)
  - Delusion [Recovered/Resolved]
  - Aggression [Recovered/Resolved]
  - Delirium [Unknown]
